FAERS Safety Report 5258557-7 (Version None)
Quarter: 2007Q1

REPORT INFORMATION
  Report Type: 
  Country: None (occurrence: None)
  Receive Date: 20070308
  Receipt Date: 20070223
  Transmission Date: 20070707
  Serious: Yes (Hospitalization)
  Sender: FDA-Public Use
  Company Number: PHBS2007JP03116

PATIENT
  Age: 61 Year
  Sex: Male

DRUGS (6)
  1. TOFRANIL [Suspect]
     Indication: DEPRESSION
     Dosage: 75 MG/DAY
     Route: 048
  2. TETRAMIDE [Concomitant]
     Indication: DEPRESSION
     Dosage: 30 MG/DAY
     Route: 048
     Dates: end: 20061026
  3. TRYPTANOL [Concomitant]
     Indication: DEPRESSION
     Dosage: 75 MG/DAY
     Route: 048
     Dates: end: 20061026
  4. DEPAS [Concomitant]
     Route: 065
  5. CONSTAN [Concomitant]
     Route: 065
  6. DOGMATYL [Concomitant]
     Route: 065
     Dates: start: 20060815

REACTIONS (22)
  - ABNORMAL BEHAVIOUR [None]
  - ALANINE AMINOTRANSFERASE INCREASED [None]
  - ASPARTATE AMINOTRANSFERASE INCREASED [None]
  - BLOOD ALKALINE PHOSPHATASE INCREASED [None]
  - BLOOD CREATINE PHOSPHOKINASE INCREASED [None]
  - BLOOD GLUCOSE INCREASED [None]
  - BLOOD LACTATE DEHYDROGENASE INCREASED [None]
  - BLOOD PRESSURE INCREASED [None]
  - BODY TEMPERATURE DECREASED [None]
  - COMMUNICATION DISORDER [None]
  - CONFUSIONAL STATE [None]
  - DEHYDRATION [None]
  - DEPRESSED LEVEL OF CONSCIOUSNESS [None]
  - HEART RATE INCREASED [None]
  - HYPERHIDROSIS [None]
  - HYPERREFLEXIA [None]
  - MYDRIASIS [None]
  - MYOCLONUS [None]
  - SEROTONIN SYNDROME [None]
  - STUPOR [None]
  - TREMOR [None]
  - WHITE BLOOD CELL COUNT INCREASED [None]
